FAERS Safety Report 9528968 (Version 1)
Quarter: 2013Q3

REPORT INFORMATION
  Report Type: Spontaneous
  Country: US (occurrence: US)
  Receive Date: 20130917
  Receipt Date: 20130917
  Transmission Date: 20140515
  Serious: No
  Sender: FDA-Public Use
  Company Number: US-BANPHARM-20131323

PATIENT
  Age: 23 Year
  Sex: Female
  Weight: 54.43 kg

DRUGS (3)
  1. ZYRTEC LIQUID GELS 10 MG [Suspect]
     Indication: NASAL CONGESTION
     Dosage: 1DF, QD,
     Route: 048
     Dates: start: 20130505, end: 20130508
  2. MULTI VITAMIN [Concomitant]
     Dosage: 1DF, QD,
  3. SALINE WASHES [Concomitant]
     Indication: NASAL CONGESTION
     Dosage: 1 DF, QD,
     Dates: start: 20130505

REACTIONS (1)
  - Drug ineffective [Unknown]
